FAERS Safety Report 19468954 (Version 1)
Quarter: 2021Q2

REPORT INFORMATION
  Report Type: Report from Study
  Country: CA (occurrence: CA)
  Receive Date: 20210628
  Receipt Date: 20210628
  Transmission Date: 20210717
  Serious: Yes (Other)
  Sender: FDA-Public Use
  Company Number: CA-TAKEDA-2021TUS034557

PATIENT
  Age: 40 Year
  Sex: Female

DRUGS (10)
  1. FRAGMIN [Concomitant]
     Active Substance: DALTEPARIN SODIUM
     Indication: ANTICOAGULANT THERAPY
     Route: 065
  2. CUVITRU [Suspect]
     Active Substance: HUMAN IMMUNOGLOBULIN G
     Dosage: 12 GRAM, 1/WEEK
     Route: 065
     Dates: start: 20210526
  3. CUVITRU [Suspect]
     Active Substance: HUMAN IMMUNOGLOBULIN G
     Dosage: 12 GRAM, 1/WEEK
     Route: 065
     Dates: start: 20210526, end: 20210618
  4. LDN [Concomitant]
     Active Substance: NALTREXONE
     Dosage: 0.1 MILLIGRAM, Q3WEEKS
     Route: 065
  5. NEUPOGEN [Concomitant]
     Active Substance: FILGRASTIM
     Route: 065
  6. PROGESTERONE. [Concomitant]
     Active Substance: PROGESTERONE
     Route: 065
  7. ACETYLSALICYLIC ACID [Concomitant]
     Active Substance: ASPIRIN
     Dosage: 81 MILLIGRAM, QD
     Route: 065
  8. NALTREXONE [Concomitant]
     Active Substance: NALTREXONE
     Dosage: UNK UNK, QD
     Route: 065
  9. LOVENOX [Concomitant]
     Active Substance: ENOXAPARIN SODIUM
     Dosage: 40 MILLIGRAM, QD
     Route: 065
  10. CUVITRU [Suspect]
     Active Substance: HUMAN IMMUNOGLOBULIN G
     Indication: INFERTILITY TESTS
     Dosage: 12 GRAM, 1/WEEK
     Route: 065
     Dates: start: 20210526

REACTIONS (8)
  - Osteoarthritis [Unknown]
  - Inflammation [Unknown]
  - Back pain [Unknown]
  - Off label use [Unknown]
  - Vasculitis [Not Recovered/Not Resolved]
  - Fatigue [Unknown]
  - Infusion site swelling [Unknown]
  - Headache [Unknown]

NARRATIVE: CASE EVENT DATE: 202105
